FAERS Safety Report 5515718-7 (Version None)
Quarter: 2007Q4

REPORT INFORMATION
  Report Type: 
  Country: None (occurrence: None)
  Receive Date: 20071113
  Receipt Date: 20070907
  Transmission Date: 20080405
  Serious: No
  Sender: FDA-Public Use
  Company Number: A0681868A

PATIENT
  Sex: Male

DRUGS (2)
  1. COREG [Suspect]
     Indication: CARDIOMYOPATHY
     Route: 048
     Dates: start: 20070101
  2. COREG CR [Suspect]
     Indication: CARDIOMYOPATHY
     Route: 048

REACTIONS (3)
  - ADVERSE DRUG REACTION [None]
  - BLOOD PRESSURE ABNORMAL [None]
  - THERAPY REGIMEN CHANGED [None]
